FAERS Safety Report 9296763 (Version 2)
Quarter: 2013Q2

REPORT INFORMATION
  Report Type: Report from Study
  Country: MX (occurrence: MX)
  Receive Date: 20130517
  Receipt Date: 20130627
  Transmission Date: 20140414
  Serious: Yes (Disabling)
  Sender: FDA-Public Use
  Company Number: MX-ABBOTT-13P-107-1091105-00

PATIENT
  Age: 39 Year
  Sex: Female
  Weight: 94 kg

DRUGS (6)
  1. HUMIRA [Suspect]
     Indication: RHEUMATOID ARTHRITIS
     Route: 058
     Dates: start: 20130320
  2. METHOTREXATE [Concomitant]
     Indication: RHEUMATOID ARTHRITIS
     Route: 048
     Dates: start: 1998
  3. SULFASALAZINE [Concomitant]
     Indication: RHEUMATOID ARTHRITIS
     Route: 048
     Dates: start: 2005
  4. CELECOXIB [Concomitant]
     Indication: RHEUMATOID ARTHRITIS
     Dosage: 01/24H
     Route: 048
     Dates: start: 201204
  5. GABAPENTIN [Concomitant]
     Indication: RHEUMATOID ARTHRITIS
     Dosage: 01/24H
     Route: 048
     Dates: start: 201205
  6. PAROXETINE [Concomitant]
     Indication: DEPRESSION
     Dosage: 1/24H
     Route: 048
     Dates: start: 201204

REACTIONS (6)
  - Pain in jaw [Recovered/Resolved]
  - Pain in jaw [Recovered/Resolved]
  - Pain in extremity [Not Recovered/Not Resolved]
  - Arthralgia [Not Recovered/Not Resolved]
  - Joint range of motion decreased [Unknown]
  - Activities of daily living impaired [Unknown]
